FAERS Safety Report 5793004-8 (Version None)
Quarter: 2008Q2

REPORT INFORMATION
  Report Type: 
  Country: None (occurrence: None)
  Receive Date: 20080627
  Receipt Date: 20080617
  Transmission Date: 20081010
  Serious: Yes (Death)
  Sender: FDA-Public Use
  Company Number: US-ROCHE-549524

PATIENT
  Sex: Male

DRUGS (4)
  1. PEG-INTERFERON A-2A (RO 25-8310) [Suspect]
     Route: 065
     Dates: start: 20070728, end: 20080102
  2. PEG-INTERFERON A-2A (RO 25-8310) [Suspect]
     Route: 065
     Dates: start: 20080116, end: 20080130
  3. RIBAVIRIN [Suspect]
     Route: 065
     Dates: start: 20070728, end: 20080102
  4. RIBAVIRIN [Suspect]
     Route: 065
     Dates: start: 20080116, end: 20080130

REACTIONS (1)
  - DEATH [None]
